FAERS Safety Report 13555180 (Version 1)
Quarter: 2017Q2

REPORT INFORMATION
  Report Type: Spontaneous
  Country: US (occurrence: US)
  Receive Date: 20170517
  Receipt Date: 20170517
  Transmission Date: 20170830
  Serious: Yes (Other)
  Sender: FDA-Public Use
  Company Number: US-MYLANLABS-2017M1029260

PATIENT

DRUGS (3)
  1. DOXYCYCLINE. [Concomitant]
     Active Substance: DOXYCYCLINE
     Indication: PLASMODIUM FALCIPARUM INFECTION
     Route: 065
  2. QUINIDINE [Suspect]
     Active Substance: QUINIDINE
     Indication: PLASMODIUM FALCIPARUM INFECTION
     Route: 065
  3. QUININE [Suspect]
     Active Substance: QUININE
     Indication: PLASMODIUM FALCIPARUM INFECTION
     Route: 065

REACTIONS (2)
  - Ototoxicity [Recovering/Resolving]
  - Electrocardiogram QT prolonged [Unknown]
